FAERS Safety Report 6442692-1 (Version None)
Quarter: 2009Q4

REPORT INFORMATION
  Report Type: 
  Country: None (occurrence: None)
  Receive Date: 20091117
  Receipt Date: 20091112
  Transmission Date: 20100525
  Serious: No
  Sender: FDA-Public Use
  Company Number: GB-ROCHE-647920

PATIENT
  Sex: Male
  Weight: 8.2 kg

DRUGS (3)
  1. TAMIFLU [Suspect]
     Dosage: REPORTED AS TAKEM 10ML OF A 17ML DOSE
     Route: 065
     Dates: start: 20090625, end: 20090626
  2. TAMIFLU [Suspect]
     Route: 065
  3. PARACETAMOL [Concomitant]
     Dosage: REPORTED AS 120MG/5ML TAKEN 4 TIMES A DAY AS NEEDED
     Route: 048
     Dates: start: 20090624

REACTIONS (3)
  - MALAISE [None]
  - UNDERDOSE [None]
  - VOMITING [None]
